FAERS Safety Report 11049208 (Version 1)
Quarter: 2015Q2

REPORT INFORMATION
  Report Type: Spontaneous
  Country: US (occurrence: US)
  Receive Date: 20150420
  Receipt Date: 20150420
  Transmission Date: 20150821
  Serious: No
  Sender: FDA-Public Use
  Company Number: US-PFIZER INC-2015127784

PATIENT
  Sex: Female

DRUGS (1)
  1. GABAPENTIN. [Suspect]
     Active Substance: GABAPENTIN
     Indication: MYALGIA
     Dosage: 300 MG, DAILY

REACTIONS (10)
  - Eye pain [Unknown]
  - Mouth ulceration [Unknown]
  - Dry eye [Unknown]
  - Asthenia [Unknown]
  - Anxiety [Unknown]
  - Stomatitis [Unknown]
  - Ocular hyperaemia [Unknown]
  - Abdominal distension [Unknown]
  - Dry skin [Unknown]
  - Contusion [Unknown]
